FAERS Safety Report 4757371-6 (Version None)
Quarter: 2005Q3

REPORT INFORMATION
  Report Type: 
  Country: None (occurrence: None)
  Receive Date: 20050831
  Receipt Date: 20050819
  Transmission Date: 20060218
  Serious: Yes (Other)
  Sender: FDA-Public Use
  Company Number: US-JNJFOC-20050805663

PATIENT
  Sex: Female

DRUGS (5)
  1. DURAGESIC-100 [Suspect]
     Route: 062
  2. DURAGESIC-100 [Suspect]
     Route: 062
  3. TRAZODONE [Concomitant]
     Route: 048
  4. PROVIGIL [Concomitant]
     Route: 048
  5. OXYCODONE [Concomitant]
     Indication: PAIN
     Dosage: TAKES UP TO 6 PILLS PER DAY
     Route: 048

REACTIONS (6)
  - ANAEMIA [None]
  - HYPERTENSION [None]
  - RENAL FAILURE [None]
  - SLEEP APNOEA SYNDROME [None]
  - SOMNOLENCE [None]
  - THERAPEUTIC RESPONSE DECREASED [None]
